FAERS Safety Report 25796330 (Version 1)
Quarter: 2025Q3

REPORT INFORMATION
  Report Type: Spontaneous
  Country: US (occurrence: None)
  Receive Date: 20250912
  Receipt Date: 20250912
  Transmission Date: 20251020
  Serious: No
  Sender: FDA-CTU
  Company Number: None

PATIENT

DRUGS (1)
  1. METFORMIN [Suspect]
     Active Substance: METFORMIN HYDROCHLORIDE

REACTIONS (3)
  - Diabetes mellitus inadequate control [None]
  - Glycosylated haemoglobin increased [None]
  - Albumin urine present [None]

NARRATIVE: CASE EVENT DATE: 20250911
